FAERS Safety Report 12393157 (Version 1)
Quarter: 2016Q2

REPORT INFORMATION
  Report Type: Spontaneous
  Country: US (occurrence: None)
  Receive Date: 20160520
  Receipt Date: 20160520
  Transmission Date: 20160815
  Serious: No
  Sender: FDA-Public Use
  Company Number: None

PATIENT
  Age: 35 Year
  Sex: Female
  Weight: 67.13 kg

DRUGS (5)
  1. PROPRANOLOL [Concomitant]
     Active Substance: PROPRANOLOL\PROPRANOLOL HYDROCHLORIDE
  2. VITA FUSION - MULTIVITES [Concomitant]
  3. NATURE MADE - VITAMIN D3 GUMMIES [Concomitant]
  4. ALPRAZOLAM 0.5 MG [Suspect]
     Active Substance: ALPRAZOLAM
     Indication: ANXIETY
     Dosage: 0.5 TABLETS AS NEEDED
     Route: 048
  5. NATURE MADE - CHEWABLE VITAMIN C [Concomitant]

REACTIONS (5)
  - Product colour issue [None]
  - Feeling of body temperature change [None]
  - Drug ineffective [None]
  - Headache [None]
  - Product substitution issue [None]

NARRATIVE: CASE EVENT DATE: 20160515
